FAERS Safety Report 19999872 (Version 4)
Quarter: 2021Q4

REPORT INFORMATION
  Report Type: Report from Study
  Country: PL (occurrence: PL)
  Receive Date: 20211026
  Receipt Date: 20211122
  Transmission Date: 20220303
  Serious: Yes (Death, Life-Threatening, Hospitalization)
  Sender: FDA-Public Use
  Company Number: PL-PFIZER INC-202101425500

PATIENT
  Age: 61 Year
  Sex: Male
  Weight: 108 kg

DRUGS (6)
  1. TALAZOPARIB [Suspect]
     Active Substance: TALAZOPARIB
     Indication: Prostate cancer metastatic
     Dosage: UNK, DAILY
     Route: 048
     Dates: start: 20200721
  2. ENZALUTAMIDE [Suspect]
     Active Substance: ENZALUTAMIDE
     Indication: Prostate cancer metastatic
     Dosage: 160 MG, DAILY
     Route: 048
     Dates: start: 20200721
  3. INDAPAMIDE [Concomitant]
     Active Substance: INDAPAMIDE
     Indication: Hypertension
     Dosage: 5 MG, DAILY
     Route: 048
     Dates: start: 2010
  4. CONCORAM [Concomitant]
     Indication: Hypertension
     Dosage: 20 MG, DAILY
     Route: 048
     Dates: start: 2010
  5. GLUCOPHAGE [Concomitant]
     Active Substance: METFORMIN HYDROCHLORIDE
     Indication: Diabetes mellitus
     Dosage: 1000 MG, DAILY
     Route: 048
     Dates: start: 2018
  6. LINAGLIPTIN [Concomitant]
     Active Substance: LINAGLIPTIN
     Indication: Diabetes mellitus
     Dosage: MG, DAILY
     Route: 048
     Dates: start: 20210801

REACTIONS (2)
  - Drug-induced liver injury [Unknown]
  - Disseminated intravascular coagulation [Fatal]

NARRATIVE: CASE EVENT DATE: 20211022
